FAERS Safety Report 5049634-4 (Version None)
Quarter: 2006Q2

REPORT INFORMATION
  Report Type: 
  Country: None (occurrence: None)
  Receive Date: 20060601
  Receipt Date: 20060301
  Transmission Date: 20061013
  Serious: No
  Sender: FDA-Public Use
  Company Number: US200603000443

PATIENT
  Age: 53 Year
  Sex: Female

DRUGS (3)
  1. CYMBALTA [Suspect]
     Indication: DEPRESSION
     Dosage: 30 MG
     Dates: start: 20050201
  2. STRATTERA [Suspect]
     Indication: ATTENTION DEFICIT/HYPERACTIVITY DISORDER
     Dates: start: 20050101
  3. SEROQUEL [Concomitant]

REACTIONS (5)
  - ABDOMINAL DISTENSION [None]
  - ANORGASMIA [None]
  - DIZZINESS POSTURAL [None]
  - URINARY RETENTION [None]
  - WEIGHT INCREASED [None]
